FAERS Safety Report 5286722-1 (Version None)
Quarter: 2007Q1

REPORT INFORMATION
  Report Type: 
  Country: None (occurrence: None)
  Receive Date: 20070116
  Receipt Date: 20061116
  Transmission Date: 20070707
  Serious: No
  Sender: FDA-Public Use
  Company Number: 2006SP004086

PATIENT
  Age: 47 Year
  Sex: Female
  Weight: 45.3597 kg

DRUGS (5)
  1. LUNESTA [Suspect]
     Indication: INSOMNIA
     Dosage: 2 MG;ORAL
     Route: 048
     Dates: start: 20061113
  2. PREDNISONE TAB [Concomitant]
  3. BIAXIN [Concomitant]
  4. ALLEGRA [Concomitant]
  5. FLONASE [Concomitant]

REACTIONS (1)
  - DYSGEUSIA [None]
